FAERS Safety Report 9394454 (Version 4)
Quarter: 2013Q3

REPORT INFORMATION
  Report Type: Spontaneous
  Country: US (occurrence: US)
  Receive Date: 20130711
  Receipt Date: 20130826
  Transmission Date: 20140515
  Serious: No
  Sender: FDA-Public Use
  Company Number: US-PFIZER INC-2013202941

PATIENT
  Age: 81 Year
  Sex: Male
  Weight: 90.7 kg

DRUGS (3)
  1. LYRICA [Suspect]
     Indication: DIABETIC NEUROPATHY
     Dosage: 75 MG, 3X/DAY
     Route: 048
     Dates: start: 201305, end: 201305
  2. LYRICA [Suspect]
     Dosage: 75 MG, UNK
     Dates: start: 201306, end: 20130705
  3. LYRICA [Suspect]
     Dosage: 75 MG, 3X/DAY

REACTIONS (7)
  - Dizziness [Recovered/Resolved]
  - Balance disorder [Recovered/Resolved]
  - Feeling abnormal [Recovered/Resolved]
  - Nausea [Unknown]
  - Disorientation [Unknown]
  - Tremor [Unknown]
  - Fall [Unknown]
